FAERS Safety Report 9496900 (Version 1)
Quarter: 2013Q3

REPORT INFORMATION
  Report Type: Spontaneous
  Country: US (occurrence: None)
  Receive Date: 20130903
  Receipt Date: 20130903
  Transmission Date: 20140515
  Serious: Yes (Life-Threatening, Hospitalization, Disabling, Other)
  Sender: FDA-Public Use
  Company Number: None

PATIENT
  Age: 20 Year
  Sex: Female
  Weight: 99.79 kg

DRUGS (3)
  1. SAFYRAL [Suspect]
     Indication: OVARIAN CYST
     Route: 048
     Dates: start: 20130601, end: 20130816
  2. SAFYRAL [Suspect]
     Indication: PROPHYLAXIS
     Route: 048
     Dates: start: 20130601, end: 20130816
  3. SAFYRAL [Suspect]
     Indication: CONTRACEPTION
     Route: 048
     Dates: start: 20130601, end: 20130816

REACTIONS (8)
  - Loss of consciousness [None]
  - Unresponsive to stimuli [None]
  - Abasia [None]
  - Pulmonary embolism [None]
  - Thrombosis [None]
  - Thrombosis [None]
  - Pulmonary infarction [None]
  - Urinary tract infection [None]
